FAERS Safety Report 4842350-0 (Version None)
Quarter: 2005Q4

REPORT INFORMATION
  Report Type: 
  Country: None (occurrence: None)
  Receive Date: 20051201
  Receipt Date: 20051024
  Transmission Date: 20060501
  Serious: Yes (Hospitalization)
  Sender: FDA-Public Use
  Company Number: GBWYE090626OCT05

PATIENT
  Sex: Female

DRUGS (4)
  1. ENBREL [Suspect]
     Indication: RHEUMATOID ARTHRITIS
     Dosage: UNKNOWN
     Route: 058
     Dates: start: 20050801, end: 20050801
  2. ENBREL [Suspect]
     Dosage: UNKNOWN
     Route: 065
  3. SULFASALAZINE [Concomitant]
     Dates: start: 20020101
  4. ARTHROTEC [Concomitant]
     Dates: start: 19990101

REACTIONS (1)
  - ABDOMINAL PAIN [None]
